FAERS Safety Report 9628722 (Version 2)
Quarter: 2014Q1

REPORT INFORMATION
  Report Type: Spontaneous
  Country: GB (occurrence: GB)
  Receive Date: 20131017
  Receipt Date: 20140203
  Transmission Date: 20141002
  Serious: Yes (Disabling)
  Sender: FDA-Public Use
  Company Number: GB-MYLANLABS-2013S1022583

PATIENT
  Age: 44 Year
  Sex: Female
  Weight: 78.92 kg

DRUGS (15)
  1. MIRTAZAPINE [Suspect]
     Indication: CHRONIC FATIGUE SYNDROME
     Dates: start: 20130901
  2. MIRTAZAPINE [Suspect]
     Dates: start: 20130901
  3. MIRTAZAPINE [Suspect]
     Indication: CHRONIC FATIGUE SYNDROME
  4. MIRTAZAPINE [Suspect]
  5. MIRTAZAPINE [Suspect]
     Indication: CHRONIC FATIGUE SYNDROME
  6. MIRTAZAPINE [Suspect]
  7. MIRTAZAPINE [Suspect]
     Indication: CHRONIC FATIGUE SYNDROME
  8. MIRTAZAPINE [Suspect]
  9. MIRTAZAPINE [Suspect]
     Indication: CHRONIC FATIGUE SYNDROME
     Dates: end: 20130921
  10. MIRTAZAPINE [Suspect]
     Dates: end: 20130921
  11. CARMELLOSE SODIUM [Concomitant]
     Indication: PRODUCT USED FOR UNKNOWN INDICATION
  12. NAPROXEN [Concomitant]
     Indication: PRODUCT USED FOR UNKNOWN INDICATION
  13. OMEPRAZOLE [Concomitant]
     Indication: PRODUCT USED FOR UNKNOWN INDICATION
  14. PARACETAMOL [Concomitant]
     Indication: PRODUCT USED FOR UNKNOWN INDICATION
  15. TRAMADOL [Concomitant]
     Indication: PRODUCT USED FOR UNKNOWN INDICATION

REACTIONS (8)
  - Cold sweat [Recovered/Resolved]
  - Fatigue [Recovered/Resolved]
  - Influenza like illness [Recovered/Resolved]
  - Headache [Recovered/Resolved]
  - Insomnia [Not Recovered/Not Resolved]
  - Mood swings [Recovered/Resolved]
  - Nausea [Recovered/Resolved]
  - Hyperhidrosis [Recovered/Resolved]
